FAERS Safety Report 21662678 (Version 1)
Quarter: 2022Q4

REPORT INFORMATION
  Report Type: Spontaneous
  Country: US (occurrence: US)
  Receive Date: 20221130
  Receipt Date: 20221130
  Transmission Date: 20230112
  Serious: Yes (Other)
  Sender: FDA-Public Use
  Company Number: US-PFIZER INC-PV202200112848

PATIENT
  Sex: Female

DRUGS (1)
  1. METHOTREXATE SODIUM [Suspect]
     Active Substance: METHOTREXATE SODIUM
     Indication: Lupus-like syndrome
     Dosage: UNK

REACTIONS (5)
  - Blindness [Unknown]
  - Dry age-related macular degeneration [Unknown]
  - Visual acuity reduced [Unknown]
  - Loss of personal independence in daily activities [Unknown]
  - Off label use [Unknown]
